FAERS Safety Report 4461648-1 (Version None)
Quarter: 2004Q3

REPORT INFORMATION
  Report Type: 
  Country: None (occurrence: None)
  Receive Date: 20040924
  Receipt Date: 20040924
  Transmission Date: 20050211
  Serious: Yes (Hospitalization)
  Sender: FDA-Public Use
  Company Number: None

PATIENT
  Age: 35 Year
  Sex: Male
  Weight: 98.4306 kg

DRUGS (4)
  1. IRESSA [Suspect]
     Indication: NON-SMALL CELL LUNG CANCER
     Dosage: 250 MG QD ORAL
     Route: 048
     Dates: start: 20040709, end: 20040923
  2. CELECOXIB 200 MG [Suspect]
     Indication: NON-SMALL CELL LUNG CANCER
     Dosage: 400 MG BID ORAL
     Route: 048
     Dates: start: 20040109, end: 20040923
  3. VICODIN [Concomitant]
  4. COMBIVENT [Concomitant]

REACTIONS (6)
  - BLOOD PRESSURE ABNORMAL [None]
  - CREPITATIONS [None]
  - DYSPNOEA [None]
  - HEART RATE INCREASED [None]
  - OXYGEN SATURATION DECREASED [None]
  - WHEEZING [None]
